FAERS Safety Report 21568139 (Version 1)
Quarter: 2022Q4

REPORT INFORMATION
  Report Type: Spontaneous
  Country: US (occurrence: None)
  Receive Date: 20221107
  Receipt Date: 20221107
  Transmission Date: 20230113
  Serious: Yes (Hospitalization)
  Sender: FDA-Public Use
  Company Number: None

PATIENT
  Age: 56 Year
  Sex: Female
  Weight: 144.24 kg

DRUGS (2)
  1. BACLOFEN [Suspect]
     Active Substance: BACLOFEN
     Indication: Pain
     Dosage: FREQUENCY : AS NEEDED;?
     Route: 048
     Dates: start: 20220819, end: 20220824
  2. BACLOFEN [Suspect]
     Active Substance: BACLOFEN
     Indication: Back pain

REACTIONS (12)
  - Urticaria [None]
  - Pruritus [None]
  - Erythema [None]
  - Miosis [None]
  - Aphasia [None]
  - Feeling abnormal [None]
  - Poor venous access [None]
  - Toxic encephalopathy [None]
  - Hypertension [None]
  - Type 2 diabetes mellitus [None]
  - Rheumatoid arthritis [None]
  - Drug hypersensitivity [None]

NARRATIVE: CASE EVENT DATE: 20220822
